FAERS Safety Report 8250473-1 (Version None)
Quarter: 2012Q2

REPORT INFORMATION
  Report Type: 
  Country: None (occurrence: None)
  Receive Date: 20120402
  Receipt Date: 20120402
  Transmission Date: 20120825
  Serious: Yes (Life-Threatening)
  Sender: FDA-Public Use
  Company Number: None

PATIENT
  Age: 4 Year
  Sex: Female

DRUGS (2)
  1. KETAMINE HCL [Suspect]
     Dosage: 40 MG
     Route: 030
  2. ATROPINE [Concomitant]
     Dosage: 0.2 MG
     Route: 030

REACTIONS (3)
  - RASH [None]
  - APNOEA [None]
  - INJECTION SITE RASH [None]
